FAERS Safety Report 8529982-3 (Version None)
Quarter: 2012Q3

REPORT INFORMATION
  Report Type: 
  Country: None (occurrence: None)
  Receive Date: 20120723
  Receipt Date: 20110602
  Transmission Date: 20120928
  Serious: No
  Sender: FDA-Public Use
  Company Number: US-GLAXOSMITHKLINE-A0930063A

PATIENT
  Sex: Female

DRUGS (1)
  1. TRIAMTERENE AND HYDROCHLOROTHIAZIDE [Suspect]
     Indication: HYPERTENSION
     Dosage: 1CAP PER DAY
     Route: 048
     Dates: start: 20110501

REACTIONS (1)
  - DRUG INEFFECTIVE [None]
